FAERS Safety Report 9011870 (Version 1)
Quarter: 2013Q1

REPORT INFORMATION
  Report Type: Spontaneous
  Country: US (occurrence: US)
  Receive Date: 20130113
  Receipt Date: 20130113
  Transmission Date: 20140127
  Serious: Yes (Other)
  Sender: FDA-Public Use
  Company Number: US-009507513-0907USA03802

PATIENT
  Age: 5 Year
  Sex: Male
  Weight: 23.13 kg

DRUGS (3)
  1. SINGULAIR [Suspect]
     Indication: MULTIPLE ALLERGIES
     Dosage: 4 MG, HS
     Route: 048
     Dates: start: 20050320, end: 20081129
  2. SINGULAIR [Suspect]
     Indication: ASTHMA
  3. SINGULAIR [Suspect]
     Indication: COUGH

REACTIONS (8)
  - Abnormal behaviour [Unknown]
  - Crying [Unknown]
  - Dyskinesia [Unknown]
  - Excessive eye blinking [Unknown]
  - Mood swings [Unknown]
  - Nervousness [Unknown]
  - Tic [Recovered/Resolved]
  - Sinusitis [Unknown]
